FAERS Safety Report 8472711-2 (Version None)
Quarter: 2012Q2

REPORT INFORMATION
  Report Type: 
  Country: None (occurrence: None)
  Receive Date: 20120627
  Receipt Date: 20120620
  Transmission Date: 20120825
  Serious: Yes (Hospitalization)
  Sender: FDA-Public Use
  Company Number: FR-PFIZER INC-2012148040

PATIENT
  Age: 46 Year
  Sex: Male

DRUGS (3)
  1. XANAX [Suspect]
     Dosage: 4 TO 5 TABLETS ONESINGLE INTAKE
     Route: 048
  2. VALIUM [Suspect]
     Dosage: 4 TO 5 TABLETS ONESINGLE INTAKE
     Route: 048
  3. COCAINE [Suspect]

REACTIONS (2)
  - PSYCHOTIC DISORDER [None]
  - DRUG ABUSE [None]
